FAERS Safety Report 14379688 (Version 1)
Quarter: 2018Q1

REPORT INFORMATION
  Report Type: Spontaneous
  Country: US (occurrence: US)
  Receive Date: 20180112
  Receipt Date: 20180112
  Transmission Date: 20180509
  Serious: Yes (Hospitalization, Other)
  Sender: FDA-Public Use
  Company Number: US-ASTELLAS-2018US002174

PATIENT
  Age: 55 Year
  Sex: Female

DRUGS (3)
  1. OMNIPAQUE [Suspect]
     Active Substance: IOHEXOL
     Dosage: UNK, SINGLE
     Route: 042
     Dates: start: 20170802, end: 20170802
  2. OMNIPAQUE [Suspect]
     Active Substance: IOHEXOL
     Indication: COMPUTERISED TOMOGRAM ABNORMAL
     Dosage: UNK, SINGLE
     Route: 042
     Dates: start: 20170731, end: 20170731
  3. LEXISCAN [Suspect]
     Active Substance: REGADENOSON
     Indication: CARDIAC STRESS TEST
     Dosage: UNK, UNKNOWN FREQ.
     Route: 042

REACTIONS (6)
  - Renal disorder [Unknown]
  - Urinary retention [Unknown]
  - Cardiac disorder [Unknown]
  - Palpitations [Unknown]
  - Functional gastrointestinal disorder [Unknown]
  - Respiratory arrest [Unknown]

NARRATIVE: CASE EVENT DATE: 20170731
